FAERS Safety Report 7076912-X (Version None)
Quarter: 2010Q4

REPORT INFORMATION
  Report Type: 
  Country: None (occurrence: None)
  Receive Date: 20101029
  Receipt Date: 20101029
  Transmission Date: 20110411
  Serious: Yes (Hospitalization, Disabling, Other)
  Sender: FDA-Public Use
  Company Number: None

PATIENT
  Age: 86 Year
  Sex: Female
  Weight: 51.2565 kg

DRUGS (1)
  1. FOSAMAX [Suspect]
     Indication: OSTEOPENIA
     Dosage: 1/2 DOSE WEEKLY PO
     Route: 048

REACTIONS (3)
  - FEMUR FRACTURE [None]
  - HIP FRACTURE [None]
  - TOOTH LOSS [None]
